FAERS Safety Report 6916777-7 (Version None)
Quarter: 2010Q3

REPORT INFORMATION
  Report Type: 
  Country: None (occurrence: None)
  Receive Date: 20100810
  Receipt Date: 20100729
  Transmission Date: 20110219
  Serious: Yes (Hospitalization, Other)
  Sender: FDA-Public Use
  Company Number: -BAXTER-ACC000043

PATIENT
  Age: 39 Year
  Sex: Female

DRUGS (5)
  1. REGLAN [Suspect]
     Indication: NAUSEA
     Route: 042
     Dates: start: 20040912
  2. PROMETHAZINE [Suspect]
     Indication: NAUSEA
     Route: 065
     Dates: start: 20040911
  3. POTASSIUM CHLORIDE/DEXTROSE/LACTATED RINGERS [Suspect]
     Indication: PRODUCT USED FOR UNKNOWN INDICATION
     Route: 042
     Dates: start: 20040911
  4. ZOFRAN [Suspect]
     Indication: NAUSEA
     Route: 042
     Dates: start: 20040912
  5. PEPCID [Suspect]
     Indication: PRODUCT USED FOR UNKNOWN INDICATION
     Route: 042
     Dates: start: 20040911

REACTIONS (3)
  - CARDIAC FLUTTER [None]
  - DRUG EXPOSURE DURING PREGNANCY [None]
  - INTRA-UTERINE DEATH [None]
